FAERS Safety Report 6155194-7 (Version None)
Quarter: 2009Q2

REPORT INFORMATION
  Report Type: 
  Country: None (occurrence: None)
  Receive Date: 20090415
  Receipt Date: 20090403
  Transmission Date: 20091009
  Serious: Yes (Other)
  Sender: FDA-Public Use
  Company Number: HU-JNJFOC-20090401975

PATIENT
  Age: 29 Year
  Sex: Female

DRUGS (7)
  1. REMICADE [Suspect]
     Route: 042
  2. REMICADE [Suspect]
     Route: 042
  3. REMICADE [Suspect]
     Route: 042
  4. REMICADE [Suspect]
     Indication: CROHN'S DISEASE
     Route: 042
  5. MESALAZINE [Concomitant]
     Indication: CROHN'S DISEASE
  6. AZATHIOPRINE [Concomitant]
     Indication: CROHN'S DISEASE
  7. BUDESONIDE [Concomitant]
     Indication: CROHN'S DISEASE

REACTIONS (6)
  - BACK PAIN [None]
  - BLOOD CREATINE PHOSPHOKINASE INCREASED [None]
  - BLOOD CREATINE PHOSPHOKINASE MB INCREASED [None]
  - BLOOD LACTATE DEHYDROGENASE INCREASED [None]
  - FISTULA [None]
  - SWEAT GLAND INFECTION [None]
